FAERS Safety Report 9639682 (Version 1)
Quarter: 2013Q4

REPORT INFORMATION
  Report Type: Report from Study
  Country: BR (occurrence: BR)
  Receive Date: 20131023
  Receipt Date: 20131023
  Transmission Date: 20140711
  Serious: Yes (Other)
  Sender: FDA-Public Use
  Company Number: BR-ROCHE-1291997

PATIENT
  Sex: 0

DRUGS (2)
  1. CAPECITABINE [Suspect]
     Indication: NEUROENDOCRINE TUMOUR
     Dosage: ON DAY 1 FOR 14 CONSECUTIVE DAYS,
     Route: 048
  2. OXALIPLATIN [Suspect]
     Indication: NEUROENDOCRINE TUMOUR
     Dosage: 100 TO 130 MG/M2 ON DAY 1, REPEATED EVERY THREE WEEKS.
     Route: 040

REACTIONS (6)
  - Neuropathy peripheral [Unknown]
  - Palmar-plantar erythrodysaesthesia syndrome [Unknown]
  - Diarrhoea [Unknown]
  - Neutropenia [Unknown]
  - Nausea [Unknown]
  - Asthenia [Unknown]
